FAERS Safety Report 25947555 (Version 1)
Quarter: 2025Q4

REPORT INFORMATION
  Report Type: Spontaneous
  Country: US (occurrence: US)
  Receive Date: 20251022
  Receipt Date: 20251022
  Transmission Date: 20260119
  Serious: Yes (Life-Threatening, Hospitalization)
  Sender: MYLAN
  Company Number: US-MYLANLABS-2025M1088616

PATIENT
  Age: 52 Year
  Sex: Male

DRUGS (5)
  1. ESMOLOL [Suspect]
     Active Substance: ESMOLOL HYDROCHLORIDE
     Indication: Prophylaxis
     Dosage: 30 MILLIGRAM
  2. AMIODARONE [Concomitant]
     Active Substance: AMIODARONE
     Indication: Prophylaxis
     Dosage: 150 MILLIGRAM (IV BOLUS)
  3. AMIODARONE [Concomitant]
     Active Substance: AMIODARONE
     Dosage: 150 MILLIGRAM (CONTINUED WITH ORAL AMIODARONE)
  4. ASPIRIN [Concomitant]
     Active Substance: ASPIRIN
     Indication: Coronary artery disease
     Dosage: UNK
  5. AMIODARONE [Concomitant]
     Active Substance: AMIODARONE
     Indication: Prophylaxis
     Dosage: 200 MILLIGRAM, QD

REACTIONS (1)
  - Drug ineffective [Unknown]
